FAERS Safety Report 12566552 (Version 1)
Quarter: 2016Q3

REPORT INFORMATION
  Report Type: Spontaneous
  Country: AU (occurrence: AU)
  Receive Date: 20160718
  Receipt Date: 20160718
  Transmission Date: 20161109
  Serious: Yes (Other)
  Sender: FDA-Public Use
  Company Number: AU-WATSON-2016-15391

PATIENT
  Age: 47 Year
  Sex: Female

DRUGS (4)
  1. HOMATROPINE [Concomitant]
     Active Substance: HOMATROPINE\HOMATROPINE HYDROBROMIDE
     Indication: KERATITIS
     Dosage: RIGHT EYE
     Route: 047
  2. IRBESARTAN. [Concomitant]
     Active Substance: IRBESARTAN
     Indication: HYPERTENSION
     Dosage: UNK
     Route: 065
  3. CIPROFLOXACIN. [Concomitant]
     Active Substance: CIPROFLOXACIN
     Indication: KERATITIS
     Dosage: UNK
     Route: 047
  4. TOBRAMYCIN (UNKNOWN) [Suspect]
     Active Substance: TOBRAMYCIN
     Indication: KERATITIS
     Dosage: RIGHT EYE 2 DAYS POST-PRESENTATION
     Route: 047

REACTIONS (1)
  - Eye irritation [Recovered/Resolved]
